FAERS Safety Report 9170631 (Version 2)
Quarter: 2013Q2

REPORT INFORMATION
  Report Type: Spontaneous
  Country: GB (occurrence: GB)
  Receive Date: 20130319
  Receipt Date: 20130412
  Transmission Date: 20140414
  Serious: Yes (Other)
  Sender: FDA-Public Use
  Company Number: GB-JNJFOC-20130303953

PATIENT
  Age: 45 Year
  Sex: Male
  Weight: 84.7 kg

DRUGS (1)
  1. STELARA [Suspect]
     Indication: PSORIASIS
     Route: 058
     Dates: start: 201101

REACTIONS (4)
  - Coeliac disease [Recovered/Resolved]
  - Eczema [Recovered/Resolved]
  - Psoriasis [Unknown]
  - Weight decreased [Recovered/Resolved]
